FAERS Safety Report 15853605 (Version 1)
Quarter: 2019Q1

REPORT INFORMATION
  Report Type: Spontaneous
  Country: US (occurrence: US)
  Receive Date: 20190121
  Receipt Date: 20190121
  Transmission Date: 20190417
  Serious: Yes (Other)
  Sender: FDA-Public Use
  Company Number: None

PATIENT
  Age: 52 Year
  Sex: Female
  Weight: 81 kg

DRUGS (1)
  1. BOTOX [Suspect]
     Active Substance: ONABOTULINUMTOXINA
     Indication: MIGRAINE
     Dosage: SUBCUTANEOUS EVERY THREE MONTHS
     Route: 058
     Dates: start: 20180810, end: 20181116

REACTIONS (1)
  - Alopecia [None]

NARRATIVE: CASE EVENT DATE: 20181116
